FAERS Safety Report 14703855 (Version 3)
Quarter: 2018Q2

REPORT INFORMATION
  Report Type: Spontaneous
  Country: US (occurrence: US)
  Receive Date: 20180402
  Receipt Date: 20180604
  Transmission Date: 20180711
  Serious: No
  Sender: FDA-Public Use
  Company Number: US-PFIZER INC-2017512267

PATIENT
  Age: 76 Year
  Sex: Female
  Weight: 59.86 kg

DRUGS (5)
  1. FASLODEX [Suspect]
     Active Substance: FULVESTRANT
     Dosage: UNK
     Dates: start: 20180502
  2. TAMOXIFEN [Suspect]
     Active Substance: TAMOXIFEN
     Indication: BREAST CANCER STAGE IV
     Dosage: 20 MG, DAILY [1 TABLET TAKEN BY MOUTH EVERY DAY]
     Route: 048
     Dates: start: 201611, end: 20180502
  3. PROLIA [Concomitant]
     Active Substance: DENOSUMAB
     Indication: BONE DISORDER
     Dosage: UNK
  4. IBRANCE [Suspect]
     Active Substance: PALBOCICLIB
     Indication: BREAST CANCER STAGE IV
     Dosage: 125 MG, CYCLIC, [1 CAPSULE TAKEN BY MOUTH DAILY FOR 21 DAYS THEN 7 DAYS OFF-REPEATING CYCLE]
     Route: 048
     Dates: start: 201611
  5. FASLODEX [Suspect]
     Active Substance: FULVESTRANT
     Dosage: UNK
     Dates: start: 20180516

REACTIONS (4)
  - Product use in unapproved indication [Unknown]
  - Drug dose omission [Unknown]
  - Visual impairment [Unknown]
  - Neoplasm progression [Unknown]

NARRATIVE: CASE EVENT DATE: 2016
